FAERS Safety Report 17134508 (Version 1)
Quarter: 2019Q4

REPORT INFORMATION
  Report Type: Spontaneous
  Country: US (occurrence: US)
  Receive Date: 20191118
  Receipt Date: 20191118
  Transmission Date: 20200122
  Serious: No
  Sender: FDA-Public Use
  Company Number: None

PATIENT
  Age: 84 Year
  Sex: Male

DRUGS (2)
  1. IMATINIB. [Concomitant]
     Active Substance: IMATINIB MESYLATE
  2. ZYTIGA [Suspect]
     Active Substance: ABIRATERONE ACETATE
     Indication: PROSTATE CANCER
     Route: 048
     Dates: start: 201906

REACTIONS (2)
  - Pneumonia [None]
  - Parkinson^s disease [None]

NARRATIVE: CASE EVENT DATE: 20191118
